FAERS Safety Report 5235785-8 (Version None)
Quarter: 2007Q1

REPORT INFORMATION
  Report Type: 
  Country: None (occurrence: None)
  Receive Date: 20070212
  Receipt Date: 20070201
  Transmission Date: 20070707
  Serious: No
  Sender: FDA-Public Use
  Company Number: US-MERCK-0612USA02684

PATIENT
  Age: 73 Year
  Sex: Female
  Weight: 76 kg

DRUGS (9)
  1. FOSAMAX [Suspect]
     Indication: OSTEOPOROSIS
     Route: 048
     Dates: start: 20061122, end: 20061206
  2. TAMOXIFEN CITRATE [Concomitant]
     Indication: BREAST CANCER
     Route: 048
  3. ASPIRIN [Concomitant]
     Indication: PROPHYLAXIS
     Route: 048
  4. FLOVENT [Concomitant]
     Indication: ASTHMA
  5. ALBUTEROL [Concomitant]
     Route: 065
  6. PRILOSEC OTC [Concomitant]
     Indication: DYSPEPSIA
     Route: 048
  7. TUMS [Concomitant]
     Route: 065
  8. CLARITIN [Concomitant]
     Route: 065
  9. DIOVAN [Concomitant]
     Indication: HYPERTENSION
     Route: 048

REACTIONS (3)
  - ARTHRALGIA [None]
  - FEELING ABNORMAL [None]
  - NECK PAIN [None]
